FAERS Safety Report 4530050-6 (Version None)
Quarter: 2004Q4

REPORT INFORMATION
  Report Type: 
  Country: None (occurrence: None)
  Receive Date: 20041215
  Receipt Date: 20041215
  Transmission Date: 20050328
  Serious: Yes (Life-Threatening, Hospitalization)
  Sender: FDA-Public Use
  Company Number: None

PATIENT
  Age: 30 Year
  Sex: Female
  Weight: 69 kg

DRUGS (15)
  1. ALDESLEUKIN [Suspect]
     Indication: MALIGNANT MELANOMA
     Dosage: 54.08 MM/IU IV EVERY 8 HOUS FOR 12 DOSES
     Route: 042
     Dates: start: 20041013, end: 20041017
  2. ALDESLEUKIN [Suspect]
     Indication: MALIGNANT MELANOMA STAGE IV
     Dosage: 54.08 MM/IU IV EVERY 8 HOUS FOR 12 DOSES
     Route: 042
     Dates: start: 20041013, end: 20041017
  3. ONDANSETRON [Concomitant]
  4. PROCLOPERAZINE [Concomitant]
  5. FAMOTIDINE [Concomitant]
  6. ACETAMONOPHEN [Concomitant]
  7. INDOMETHACIN [Concomitant]
  8. MG SULFATE [Concomitant]
  9. POTASSIUM PHOSPHATES [Concomitant]
  10. OXYCODE [Concomitant]
  11. LORAZEPAM [Concomitant]
  12. DIPHENHYDRAMINE [Concomitant]
  13. MEPERIDINE [Concomitant]
  14. EUCERIN [Concomitant]
  15. SPIRONOLACTONE [Concomitant]

REACTIONS (8)
  - BLOOD CREATINE PHOSPHOKINASE INCREASED [None]
  - CHEST PAIN [None]
  - EJECTION FRACTION DECREASED [None]
  - MYOCARDITIS [None]
  - SINUS ARRHYTHMIA [None]
  - SINUS TACHYCARDIA [None]
  - TROPONIN INCREASED [None]
  - VENTRICULAR EXTRASYSTOLES [None]
